FAERS Safety Report 19367206 (Version 2)
Quarter: 2021Q2

REPORT INFORMATION
  Report Type: Report from Study
  Country: DE (occurrence: DE)
  Receive Date: 20210602
  Receipt Date: 20210625
  Transmission Date: 20210717
  Serious: Yes (Death, Hospitalization)
  Sender: FDA-Public Use
  Company Number: DE-BAUSCH-BL-2021-018591

PATIENT
  Age: 88 Year
  Sex: Female
  Weight: 50 kg

DRUGS (10)
  1. TORASEMID [Concomitant]
     Active Substance: TORSEMIDE
     Indication: CARDIAC FAILURE
     Dates: start: 20200717, end: 20200731
  2. SECUKINUMAB. [Suspect]
     Active Substance: SECUKINUMAB
     Indication: GIANT CELL ARTERITIS
     Route: 065
     Dates: start: 20191017
  3. PALLADON [Concomitant]
     Active Substance: HYDROMORPHONE
     Indication: PAIN
     Dates: start: 20200717, end: 20200801
  4. MARCUMAR [Concomitant]
     Active Substance: PHENPROCOUMON
     Indication: PROPHYLAXIS
     Dates: start: 20200701, end: 20200824
  5. MACROGOL [Concomitant]
     Active Substance: POLYETHYLENE GLYCOLS
     Indication: PROPHYLAXIS
     Dates: start: 20200717, end: 20200801
  6. FOLSAN [Concomitant]
     Active Substance: FOLIC ACID
     Indication: PROPHYLAXIS
     Dates: start: 20150101
  7. PREDNISOLONE. [Suspect]
     Active Substance: PREDNISOLONE
     Indication: GIANT CELL ARTERITIS
     Route: 065
     Dates: start: 20200717, end: 20200721
  8. BIFITERAL [Concomitant]
     Active Substance: LACTULOSE
     Indication: PROPHYLAXIS
     Dates: start: 20200717, end: 20200801
  9. HYDROCORTISONE. [Suspect]
     Active Substance: HYDROCORTISONE
     Indication: PRODUCT USED FOR UNKNOWN INDICATION
     Route: 065
  10. LAXANS [Concomitant]
     Indication: PROPHYLAXIS
     Dates: start: 20200717, end: 20200801

REACTIONS (1)
  - Erysipelas [Recovered/Resolved]

NARRATIVE: CASE EVENT DATE: 20200717
